FAERS Safety Report 7189175-1 (Version None)
Quarter: 2010Q4

REPORT INFORMATION
  Report Type: 
  Country: None (occurrence: None)
  Receive Date: 20101222
  Receipt Date: 20100803
  Transmission Date: 20110411
  Serious: No
  Sender: FDA-Public Use
  Company Number: US-AMGEN-KDL429022

PATIENT

DRUGS (1)
  1. ENBREL [Suspect]
     Indication: RHEUMATOID ARTHRITIS
     Dosage: 50 MG, QWK
     Route: 058

REACTIONS (8)
  - INTRAOCULAR PRESSURE INCREASED [None]
  - NEUROPATHY PERIPHERAL [None]
  - SKIN INDURATION [None]
  - SKIN MASS [None]
  - STAPHYLOCOCCAL INFECTION [None]
  - SWELLING FACE [None]
  - WOUND [None]
  - WOUND COMPLICATION [None]
